FAERS Safety Report 12570255 (Version 1)
Quarter: 2016Q3

REPORT INFORMATION
  Report Type: Spontaneous
  Country: PT (occurrence: PT)
  Receive Date: 20160719
  Receipt Date: 20160719
  Transmission Date: 20161109
  Serious: Yes (Other)
  Sender: FDA-Public Use
  Company Number: PT-PFIZER INC-2016341638

PATIENT
  Sex: Female

DRUGS (2)
  1. LYRICA [Suspect]
     Active Substance: PREGABALIN
     Indication: NEURALGIA
     Dosage: 1 DF, 1X/DAY
     Route: 048
  2. LOSARTAN/HCT [Interacting]
     Active Substance: HYDROCHLOROTHIAZIDE\LOSARTAN POTASSIUM
     Indication: HYPERTENSION
     Dosage: 1 DF (12.5MG+50MG), 1X/DAY
     Route: 048

REACTIONS (5)
  - Drug interaction [Unknown]
  - Hypertension [Unknown]
  - Arrhythmia [Unknown]
  - Malaise [Unknown]
  - Condition aggravated [Unknown]
